FAERS Safety Report 12073616 (Version 3)
Quarter: 2016Q1

REPORT INFORMATION
  Report Type: Report from Study
  Country: DE (occurrence: DE)
  Receive Date: 20160212
  Receipt Date: 20160318
  Transmission Date: 20160526
  Serious: Yes (Death, Hospitalization)
  Sender: FDA-Public Use
  Company Number: DE-ABBVIE-15P-062-1514625-00

PATIENT
  Sex: Male

DRUGS (7)
  1. METOPROLOL. [Concomitant]
     Active Substance: METOPROLOL
     Indication: PRODUCT USED FOR UNKNOWN INDICATION
     Dosage: 100
  2. TORASEMIDE [Concomitant]
     Active Substance: TORSEMIDE
     Indication: PRODUCT USED FOR UNKNOWN INDICATION
     Dosage: 20
  3. SIMBA BETA [Concomitant]
     Indication: PRODUCT USED FOR UNKNOWN INDICATION
     Dosage: 40
  4. RAMIPRIL. [Concomitant]
     Active Substance: RAMIPRIL
     Indication: PRODUCT USED FOR UNKNOWN INDICATION
     Dosage: 5
  5. DUODOPA [Suspect]
     Active Substance: CARBIDOPA\LEVODOPA
     Indication: PARKINSON^S DISEASE
     Dosage: MD 10.0ML / CRD 4.3ML/H / ED 1.0ML
     Route: 050
     Dates: start: 20130110, end: 20151225
  6. DUODOPA [Suspect]
     Active Substance: CARBIDOPA\LEVODOPA
     Dosage: MD 10.0ML / CRD 4.3ML/H / ED 1.0ML
     Route: 050
     Dates: start: 20160105, end: 20160208
  7. FOLIC ACID. [Concomitant]
     Active Substance: FOLIC ACID
     Indication: PRODUCT USED FOR UNKNOWN INDICATION

REACTIONS (9)
  - Pneumonia aspiration [Fatal]
  - Pneumonia [Fatal]
  - Sepsis [Fatal]
  - Stoma site inflammation [Not Recovered/Not Resolved]
  - Pyrexia [Not Recovered/Not Resolved]
  - Stoma site hypergranulation [Not Recovered/Not Resolved]
  - Parkinson^s disease [Not Recovered/Not Resolved]
  - Stoma site infection [Unknown]
  - General physical health deterioration [Fatal]

NARRATIVE: CASE EVENT DATE: 2015
